FAERS Safety Report 14100836 (Version 1)
Quarter: 2017Q4

REPORT INFORMATION
  Report Type: Report from Study
  Country: CZ (occurrence: CZ)
  Receive Date: 20171018
  Receipt Date: 20171018
  Transmission Date: 20180321
  Serious: Yes (Hospitalization, Other)
  Sender: FDA-Public Use
  Company Number: CZ-BAYER-2017-189388

PATIENT
  Age: 32 Year
  Sex: Female
  Weight: 63 kg

DRUGS (1)
  1. MIRENA [Suspect]
     Active Substance: LEVONORGESTREL
     Dosage: 20 MCG/24HR, CONT
     Route: 015
     Dates: start: 20150505, end: 20160602

REACTIONS (41)
  - Abdominal pain lower [None]
  - Secretion discharge [None]
  - Vaginal haemorrhage [None]
  - Abdominal pain lower [None]
  - Uterine haemorrhage [None]
  - Vaginal haemorrhage [None]
  - Uterine disorder [None]
  - Uterine tenderness [None]
  - Vaginal discharge [None]
  - Uterine disorder [None]
  - Uterine disorder [Recovering/Resolving]
  - Vaginal discharge [None]
  - Vaginal discharge [None]
  - Adnexa uteri pain [None]
  - Menorrhagia [None]
  - Genital haemorrhage [None]
  - Hydrometra [None]
  - Genital haemorrhage [None]
  - Genital haemorrhage [None]
  - Pelvic pain [None]
  - Vaginal discharge [None]
  - Vaginal haemorrhage [None]
  - Loop electrosurgical excision procedure [None]
  - Device dislocation [Recovered/Resolved]
  - Device use issue [None]
  - Abdominal discomfort [None]
  - Pelvic pain [None]
  - Pelvic pain [None]
  - Dysmenorrhoea [None]
  - Vaginal haemorrhage [None]
  - Menstruation irregular [None]
  - Pelvic infection [None]
  - Abdominal discomfort [Recovering/Resolving]
  - Uterine pain [None]
  - Dyspareunia [None]
  - Secretion discharge [None]
  - Vaginal haemorrhage [None]
  - Uterine haemorrhage [None]
  - Vaginal discharge [None]
  - Adnexa uteri pain [None]
  - Genital haemorrhage [Recovered/Resolved]

NARRATIVE: CASE EVENT DATE: 20150616
